FAERS Safety Report 19521232 (Version 2)
Quarter: 2021Q4

REPORT INFORMATION
  Report Type: Spontaneous
  Country: JP (occurrence: JP)
  Receive Date: 20210712
  Receipt Date: 20211011
  Transmission Date: 20220304
  Serious: Yes (Hospitalization, Other)
  Sender: FDA-Public Use
  Company Number: JP-DSJP-DSJ-2021-120956AA

PATIENT
  Age: 8 Decade
  Sex: Male
  Weight: 64 kg

DRUGS (18)
  1. CARVEDILOL [Suspect]
     Active Substance: CARVEDILOL
     Indication: Product used for unknown indication
     Dosage: 10 MG, BID
     Route: 048
  2. CARVEDILOL [Suspect]
     Active Substance: CARVEDILOL
     Dosage: 5MG/DAY
     Route: 048
  3. OLMESARTAN MEDOXOMIL [Suspect]
     Active Substance: OLMESARTAN MEDOXOMIL
     Indication: Product used for unknown indication
     Dosage: 10 MG, QD
     Route: 065
  4. AZOSEMIDE [Concomitant]
     Active Substance: AZOSEMIDE
     Dosage: 60 MG, QD
     Route: 048
  5. AZOSEMIDE [Concomitant]
     Active Substance: AZOSEMIDE
     Dosage: 30 MG/DAY
     Route: 048
  6. AZOSEMIDE [Concomitant]
     Active Substance: AZOSEMIDE
     Dosage: 60 MG/DAY
     Route: 048
  7. TORSEMIDE [Concomitant]
     Active Substance: TORSEMIDE
     Dosage: 8 MG, QD
     Route: 048
  8. TORSEMIDE [Concomitant]
     Active Substance: TORSEMIDE
     Dosage: 4 MG/DAY
     Route: 048
  9. METILDIGOXIN [Concomitant]
     Active Substance: METILDIGOXIN
     Dosage: 0.05 MG, QD
     Route: 048
  10. NICORANDIL [Concomitant]
     Active Substance: NICORANDIL
     Dosage: 5 MG, BID
     Route: 048
  11. ISOSORBIDE DINITRATE [Concomitant]
     Active Substance: ISOSORBIDE DINITRATE
     Dosage: 40MG/DAY
     Route: 065
  12. DABIGATRAN ETEXILATE [Concomitant]
     Active Substance: DABIGATRAN ETEXILATE
     Dosage: 150 MG, BID
     Route: 048
  13. INSULIN LISPRO [Concomitant]
     Active Substance: INSULIN LISPRO
     Dosage: 6 IU, TID, BEFORE EACH MEAL
     Route: 065
  14. INSULIN GLARGINE [Concomitant]
     Active Substance: INSULIN GLARGINE
     Dosage: 8 IU, QD, BEFORE SLEEP
     Route: 065
  15. MAGNESIUM OXIDE [Concomitant]
     Active Substance: MAGNESIUM OXIDE
     Dosage: 330 MG, TID
     Route: 048
  16. FEBUXOSTAT [Concomitant]
     Active Substance: FEBUXOSTAT
     Dosage: 20 MG, QD
     Route: 048
  17. LAFUTIDINE [Concomitant]
     Active Substance: LAFUTIDINE
     Dosage: 10 MG, BID
     Route: 048
  18. TRIAZOLAM [Concomitant]
     Active Substance: TRIAZOLAM
     Dosage: 0.125 MG, QD
     Route: 048

REACTIONS (3)
  - Cardiac failure acute [Recovering/Resolving]
  - Pneumonia [Unknown]
  - Renal impairment [Unknown]
